FAERS Safety Report 6017751-8 (Version None)
Quarter: 2008Q4

REPORT INFORMATION
  Report Type: 
  Country: None (occurrence: None)
  Receive Date: 20081223
  Receipt Date: 20081212
  Transmission Date: 20090506
  Serious: Yes (Hospitalization, Other)
  Sender: FDA-Public Use
  Company Number: US-BIOGENIDEC-2008BI007352

PATIENT
  Sex: Male

DRUGS (2)
  1. TYSABRI [Suspect]
     Indication: MULTIPLE SCLEROSIS
     Route: 042
     Dates: start: 20070402, end: 20070724
  2. TYSABRI [Suspect]
     Route: 042
     Dates: start: 20071022, end: 20071220

REACTIONS (8)
  - COMPLEX PARTIAL SEIZURES [None]
  - CONFUSIONAL STATE [None]
  - COORDINATION ABNORMAL [None]
  - DEMENTIA [None]
  - DEPRESSION [None]
  - MOBILITY DECREASED [None]
  - MULTIPLE SCLEROSIS [None]
  - UROSEPSIS [None]
